FAERS Safety Report 23627119 (Version 1)
Quarter: 2024Q1

REPORT INFORMATION
  Report Type: Spontaneous
  Country: US (occurrence: US)
  Receive Date: 20240313
  Receipt Date: 20240313
  Transmission Date: 20240409
  Serious: Yes (Other)
  Sender: FDA-Public Use
  Company Number: US-JNJFOC-20240318531

PATIENT
  Age: 78 Year
  Sex: Female

DRUGS (2)
  1. TYLENOL 8 HR ARTHRITIS PAIN [Suspect]
     Active Substance: ACETAMINOPHEN
     Indication: Sciatica
     Dosage: 2 CAPLETS FOR A DAY. TWICE DAILY. ONE IN THE MORNING AND ONE AT NIGHT.
     Route: 048
     Dates: start: 202402
  2. TYLENOL 8 HR ARTHRITIS PAIN [Suspect]
     Active Substance: ACETAMINOPHEN
     Indication: Arthralgia
     Dosage: TOOK ONE BUT CUT IT IN HALF
     Route: 048
     Dates: start: 202402

REACTIONS (4)
  - Foreign body in throat [Recovered/Resolved]
  - Product complaint [Unknown]
  - Wrong technique in product usage process [Unknown]
  - Incorrect dose administered [Unknown]

NARRATIVE: CASE EVENT DATE: 20240201
